FAERS Safety Report 21532701 (Version 1)
Quarter: 2022Q4

REPORT INFORMATION
  Report Type: Spontaneous
  Country: US (occurrence: US)
  Receive Date: 20221101
  Receipt Date: 20221101
  Transmission Date: 20230113
  Serious: Yes (Hospitalization)
  Sender: FDA-Public Use
  Company Number: US-NOVARTISPH-NVSC2022US243110

PATIENT
  Sex: Female

DRUGS (1)
  1. PROMACTA [Suspect]
     Active Substance: ELTROMBOPAG OLAMINE
     Indication: Aplastic anaemia
     Dosage: 100 MG, QD (BY MOUTH)
     Route: 048
     Dates: start: 20200724

REACTIONS (4)
  - Chest pain [Unknown]
  - Haemorrhage [Not Recovered/Not Resolved]
  - Insomnia [Unknown]
  - Fear [Unknown]
